FAERS Safety Report 20331783 (Version 1)
Quarter: 2022Q1

REPORT INFORMATION
  Report Type: Report from Study
  Country: US (occurrence: None)
  Receive Date: 20220113
  Receipt Date: 20220113
  Transmission Date: 20220424
  Serious: Yes (Death, Hospitalization)
  Sender: FDA-Public Use
  Company Number: US-ROCHE-2695987

PATIENT
  Age: 67 Year
  Sex: Male
  Weight: 65.3 kg

DRUGS (19)
  1. VENETOCLAX [Suspect]
     Active Substance: VENETOCLAX
     Indication: Follicular lymphoma
     Dosage: DAILY ON DAYS 1-10 ADMINISTERED BEFORE OBINUTUZUMAB AND/OR BENDAMUSTINE?MC9D1?ON 09/OCT/2020 AND 10/
     Route: 048
     Dates: start: 20190715
  2. OBINUTUZUMAB [Suspect]
     Active Substance: OBINUTUZUMAB
     Indication: Follicular lymphoma
     Dosage: CYCLE 1, DAY 1 OBINUTUZUMAB 100 MG AND CYCLE 1, DAY 2 OBINUTUZUMAB 900 MG FOR TOTAL DOSE OF 1000 MG.
     Route: 042
     Dates: start: 20190617
  3. BENDAMUSTINE [Suspect]
     Active Substance: BENDAMUSTINE
     Indication: Follicular lymphoma
     Dosage: ON DAYS 1 AND 2 OF EACH CYCLE OVER 15 MINUTES AFTER OBINUTUZUMAB.?CYCLE 6?ON 05/NOV/2019, RECEIVED L
     Route: 042
     Dates: start: 20190617
  4. TYLENOL [Concomitant]
     Active Substance: ACETAMINOPHEN
     Dosage: TAKE 2 TABS BY MOUTH EVERY 4 HOURS AS NEEDED.
     Route: 048
  5. ZOVIRAX [Concomitant]
     Active Substance: ACYCLOVIR
     Dosage: TAB BY MOUTH 2 TIMES DAILY
     Route: 048
  6. ASPIRIN [Concomitant]
     Active Substance: ASPIRIN
     Route: 048
  7. LIPITOR [Concomitant]
     Active Substance: ATORVASTATIN CALCIUM
     Dosage: TAKE ONE TABLET BY MOUTH ONCE DAILY AT BEDTIME
     Route: 048
  8. COREG [Concomitant]
     Active Substance: CARVEDILOL
     Indication: Hypertension
     Dosage: TAKE 1 TAB BY MOUTH 2 TIMES DAILY.
     Route: 048
  9. PLAVIX [Concomitant]
     Active Substance: CLOPIDOGREL BISULFATE
     Dosage: TAKE 1 TAB BY MOUTH ONE TIME DAILY, DO NOT START BEFORE OCTOBER 14, 2020
     Route: 048
     Dates: start: 20201014
  10. PEPCID [Concomitant]
     Active Substance: FAMOTIDINE
     Route: 048
  11. INSULIN GLARGINE [Concomitant]
     Active Substance: INSULIN GLARGINE
     Indication: Diabetes mellitus
     Dosage: 100 UNIT/ML SOLN PEN-INJECTOR INJECT 12 UNITS UNDER SKIN 2 TIMES DAILY AT MEALTIME
     Route: 058
  12. INSULIN GLARGINE [Concomitant]
     Active Substance: INSULIN GLARGINE
     Indication: Type 2 diabetes mellitus
  13. HUMALOG KWIKPEN [Concomitant]
     Active Substance: INSULIN LISPRO
     Indication: Diabetes mellitus
     Dosage: INJECT 2 UNITS PER 50 }150 AT MEALS, }200 AT BEDTIMETOTAL OF 46 UNITS/DAY.
  14. NITROSTAT [Concomitant]
     Active Substance: NITROGLYCERIN
     Indication: Chest pain
     Dosage: 0.4 MG SUBLINGUAL TAB AS NEEDED
     Route: 060
  15. ZOFRAN [Concomitant]
     Active Substance: ONDANSETRON HYDROCHLORIDE
     Indication: Nausea
     Dosage: TAKE 1 TAB BY MOUTH EVERY 8 HOURS AS NEEDED
     Route: 048
  16. ZOFRAN [Concomitant]
     Active Substance: ONDANSETRON HYDROCHLORIDE
     Indication: Vomiting
  17. BACTRIM DS [Concomitant]
     Active Substance: SULFAMETHOXAZOLE\TRIMETHOPRIM
     Dosage: 800- 160 MG PER TAB?TAKE 1 TABLET BY MOUTH ONCE DAILY ON MONDAY, WEDNESDAY, AND FRIDAY
     Route: 048
  18. NORVASC [Concomitant]
     Active Substance: AMLODIPINE BESYLATE
     Dosage: NOT NEEDED AT THIS TIME
  19. FLOMAX [Concomitant]
     Active Substance: TAMSULOSIN HYDROCHLORIDE
     Dosage: TAKE 1 CAP BY MOUTH ONE TIME DAILY AT BEDTIME TAKE WHILE STENT IN PLACE
     Route: 048

REACTIONS (2)
  - Norovirus infection [Recovered/Resolved]
  - Aspiration [Fatal]

NARRATIVE: CASE EVENT DATE: 20201010
